FAERS Safety Report 12676548 (Version 2)
Quarter: 2016Q3

REPORT INFORMATION
  Report Type: Spontaneous
  Country: US (occurrence: US)
  Receive Date: 20160823
  Receipt Date: 20160920
  Transmission Date: 20161109
  Serious: No
  Sender: FDA-Public Use
  Company Number: US-GLAXOSMITHKLINE-US2016121392

PATIENT
  Age: 45 Year
  Sex: Female

DRUGS (2)
  1. EXCEDRIN EXTRA STRENGTH [Suspect]
     Active Substance: ACETAMINOPHEN\ASPIRIN\CAFFEINE
     Indication: MIGRAINE
     Dosage: UNK
  2. EXCEDRIN MIGRAINE [Suspect]
     Active Substance: ACETAMINOPHEN\ASPIRIN\CAFFEINE
     Indication: MIGRAINE
     Dosage: UNK
     Route: 048
     Dates: start: 201608, end: 201608

REACTIONS (6)
  - Drug ineffective for unapproved indication [Unknown]
  - Feeling jittery [Unknown]
  - Intentional product misuse [Unknown]
  - Drug ineffective [Unknown]
  - Extra dose administered [Unknown]
  - Product quality issue [Unknown]
